FAERS Safety Report 15713398 (Version 1)
Quarter: 2018Q4

REPORT INFORMATION
  Report Type: Spontaneous
  Country: US (occurrence: US)
  Receive Date: 20181212
  Receipt Date: 20181212
  Transmission Date: 20190205
  Serious: No
  Sender: FDA-Public Use
  Company Number: US-GLAXOSMITHKLINE-US2018GSK213732

PATIENT
  Age: 66 Year
  Sex: Female

DRUGS (2)
  1. PREDNISONE. [Suspect]
     Active Substance: PREDNISONE
     Indication: PRODUCT USED FOR UNKNOWN INDICATION
     Dosage: UNK
  2. BENLYSTA [Suspect]
     Active Substance: BELIMUMAB
     Indication: SYSTEMIC LUPUS ERYTHEMATOSUS
     Dosage: UNK, CYC

REACTIONS (12)
  - Herpes zoster [Unknown]
  - Hypersomnia [Unknown]
  - Pain [Recovered/Resolved]
  - Candida infection [Unknown]
  - Nerve injury [Unknown]
  - Dysphemia [Unknown]
  - Fatigue [Unknown]
  - Gait disturbance [Unknown]
  - Bacterial infection [Unknown]
  - Feeling abnormal [Unknown]
  - Speech disorder [Unknown]
  - Vertigo [Unknown]
